FAERS Safety Report 8938469 (Version 1)
Quarter: 2012Q4

REPORT INFORMATION
  Report Type: Report from Study
  Country: US (occurrence: US)
  Receive Date: 20121130
  Receipt Date: 20121130
  Transmission Date: 20130627
  Serious: Yes (Death, Hospitalization)
  Sender: FDA-Public Use
  Company Number: US-ACTELION-A-US2012-75076

PATIENT
  Age: 68 Year
  Sex: Female

DRUGS (3)
  1. VELETRI [Suspect]
     Indication: PULMONARY ARTERIAL HYPERTENSION
     Dosage: 9 ng/kg, per min
     Route: 042
     Dates: start: 20121114
  2. VELETRI [Suspect]
     Dosage: 2 ng/kg, per min
     Route: 042
     Dates: start: 20121020
  3. REVATIO [Concomitant]

REACTIONS (4)
  - Pulmonary arterial hypertension [Fatal]
  - Condition aggravated [Fatal]
  - Cardiac arrest [Fatal]
  - Syncope [Fatal]
